FAERS Safety Report 4410623-1 (Version None)
Quarter: 2004Q3

REPORT INFORMATION
  Report Type: 
  Country: None (occurrence: None)
  Receive Date: 20040728
  Receipt Date: 20040728
  Transmission Date: 20050211
  Serious: No
  Sender: FDA-Public Use
  Company Number: None

PATIENT
  Sex: Female
  Weight: 52.1637 kg

DRUGS (12)
  1. VASOTEC [Suspect]
     Indication: CHEST PAIN
     Dosage: DAILY AND PO
     Route: 048
     Dates: start: 20000101
  2. VASOTEC [Suspect]
     Indication: ELECTROCARDIOGRAM ABNORMAL
     Dosage: DAILY AND PO
     Route: 048
     Dates: start: 20000101
  3. VASOTEC [Suspect]
     Indication: HYPERTENSION
     Dosage: DAILY AND PO
     Route: 048
     Dates: start: 20000101
  4. VASOTEC [Suspect]
     Indication: MITRAL VALVE PROLAPSE
     Dosage: DAILY AND PO
     Route: 048
     Dates: start: 20000101
  5. XANAX [Suspect]
     Indication: ELECTROCARDIOGRAM ABNORMAL
     Dosage: DAILY AND PO
     Route: 048
     Dates: start: 20000101
  6. XANAX [Suspect]
     Indication: HYPERTENSION
     Dosage: DAILY AND PO
     Route: 048
     Dates: start: 20000101
  7. ANTIVERT [Suspect]
     Indication: ELECTROCARDIOGRAM ABNORMAL
     Dosage: DAILY AND PO
     Route: 048
     Dates: start: 20000101
  8. ANTIVERT [Suspect]
     Indication: HYPERTENSION
     Dosage: DAILY AND PO
     Route: 048
     Dates: start: 20000101
  9. CELEBREX [Suspect]
     Indication: ELECTROCARDIOGRAM ABNORMAL
     Dosage: DAILY AND PO
     Route: 048
     Dates: start: 20000101
  10. CELEBREX [Suspect]
     Indication: HYPERTENSION
     Dosage: DAILY AND PO
     Route: 048
     Dates: start: 20000101
  11. PROTONIX [Suspect]
     Indication: ELECTROCARDIOGRAM ABNORMAL
     Dosage: DAILY AND PO
     Route: 048
     Dates: start: 20000101
  12. PROTONIX [Suspect]
     Indication: HYPERTENSION
     Dosage: DAILY AND PO
     Route: 048
     Dates: start: 20000101

REACTIONS (6)
  - DIZZINESS [None]
  - HEADACHE [None]
  - NERVOUSNESS [None]
  - PALPITATIONS [None]
  - PHARMACEUTICAL PRODUCT COMPLAINT [None]
  - VISION BLURRED [None]
